FAERS Safety Report 7420562-X (Version None)
Quarter: 2011Q2

REPORT INFORMATION
  Report Type: 
  Country: None (occurrence: None)
  Receive Date: 20110418
  Receipt Date: 20110415
  Transmission Date: 20111010
  Serious: No
  Sender: FDA-Public Use
  Company Number: US-PFIZER INC-2011083526

PATIENT
  Sex: Female

DRUGS (3)
  1. GABAPENTIN [Suspect]
     Dosage: 300 MG, 2X/DAY
     Route: 048
     Dates: start: 20101217
  2. TAPENTADOL [Concomitant]
     Indication: SPINAL COLUMN STENOSIS
     Dosage: UNK
  3. VICODIN [Concomitant]
     Indication: SPINAL COLUMN STENOSIS
     Dosage: UNK

REACTIONS (1)
  - ALOPECIA [None]
